FAERS Safety Report 20918205 (Version 1)
Quarter: 2022Q2

REPORT INFORMATION
  Report Type: Spontaneous
  Country: US (occurrence: None)
  Receive Date: 20220606
  Receipt Date: 20220606
  Transmission Date: 20220721
  Serious: No
  Sender: FDA-Public Use
  Company Number: US-Shield TX (UK) Ltd-US-STX-22-00009

PATIENT
  Sex: Female

DRUGS (1)
  1. ACCRUFER [Suspect]
     Active Substance: FERRIC MALTOL
     Indication: Product used for unknown indication

REACTIONS (1)
  - Constipation [Unknown]
